FAERS Safety Report 9745997 (Version 1)
Quarter: 2013Q4

REPORT INFORMATION
  Report Type: Spontaneous
  Country: ES (occurrence: None)
  Receive Date: 20131205
  Receipt Date: 20131205
  Transmission Date: 20140711
  Serious: Yes (Hospitalization, Other)
  Sender: FDA-Public Use
  Company Number: SYM-2013-13540

PATIENT
  Age: 17 Year
  Sex: Male

DRUGS (2)
  1. ELONTRIL [Suspect]
     Indication: PRODUCT USED FOR UNKNOWN INDICATION
     Dates: start: 20131115, end: 20131115
  2. ORFIDAL (LORAZEPAM) (TABLET) (LORAZEPAM) [Suspect]
     Indication: PRODUCT USED FOR UNKNOWN INDICATION
     Dosage: 20 DOSAGE FORMS, ONCE
     Dates: start: 20131115, end: 20131115

REACTIONS (5)
  - Loss of consciousness [None]
  - Suicide attempt [None]
  - Overdose [None]
  - Tachycardia [None]
  - Headache [None]
